FAERS Safety Report 10775819 (Version 1)
Quarter: 2015Q1

REPORT INFORMATION
  Report Type: Spontaneous
  Country: US (occurrence: None)
  Receive Date: 20150205
  Receipt Date: 20150205
  Transmission Date: 20150721
  Serious: Yes (Hospitalization)
  Sender: FDA-Public Use
  Company Number: None

PATIENT
  Age: 41 Year
  Sex: Female
  Weight: 54.43 kg

DRUGS (1)
  1. CLONAZEPAM. [Suspect]
     Active Substance: CLONAZEPAM
     Indication: INSOMNIA
     Dosage: 1 TABLET BY MOUTH AT BEDTIME
     Route: 048
     Dates: start: 20140410, end: 20140411

REACTIONS (5)
  - Aggression [None]
  - Memory impairment [None]
  - Seizure [None]
  - Drug withdrawal syndrome [None]
  - Road traffic accident [None]

NARRATIVE: CASE EVENT DATE: 20140410
